FAERS Safety Report 9232061 (Version 2)
Quarter: 2013Q2

REPORT INFORMATION
  Report Type: Spontaneous
  Country: US (occurrence: US)
  Receive Date: 20130415
  Receipt Date: 20130606
  Transmission Date: 20140414
  Serious: Yes (Other)
  Sender: FDA-Public Use
  Company Number: US-PFIZER INC-2013113869

PATIENT
  Age: 53 Year
  Sex: Female
  Weight: 68.03 kg

DRUGS (8)
  1. ZITHROMAX [Suspect]
     Indication: LUNG INFECTION
     Dosage: 250 MG, 3X/WEEK
     Dates: start: 201302, end: 201302
  2. RIFAMPIN [Concomitant]
     Dosage: UNK
  3. ADVAIR [Concomitant]
     Indication: CHRONIC OBSTRUCTIVE PULMONARY DISEASE
     Dosage: 250/50 MG, 2X/DAY
  4. METFORMIN HYDROCHLORIDE/SAXAGLIPTIN [Concomitant]
     Dosage: 2.5/1000 MG, 1X/DAY
  5. ACTOS [Concomitant]
     Dosage: 30 MG, 1X/DAY
  6. MELOXICAM [Concomitant]
     Dosage: 15 MG, 1X/DAY
  7. CELEXA [Concomitant]
     Indication: DEPRESSION
     Dosage: 40 MG, 1X/DAY
  8. NEURONTIN [Concomitant]
     Dosage: 600 MG, 5X/DAY

REACTIONS (1)
  - Drug ineffective [Unknown]
